FAERS Safety Report 6609223-4 (Version None)
Quarter: 2010Q1

REPORT INFORMATION
  Report Type: 
  Country: None (occurrence: None)
  Receive Date: 20100224
  Receipt Date: 20100210
  Transmission Date: 20100710
  Serious: Yes (Other)
  Sender: FDA-Public Use
  Company Number: 2010S1001108

PATIENT
  Age: 73 Year
  Sex: Female

DRUGS (16)
  1. PHOSPHOSODA           FLAVOR NOT SPECIFIED [Suspect]
     Indication: COLONOSCOPY
     Dosage: PO
     Route: 048
     Dates: start: 20070702
  2. AMOXICILLIN [Concomitant]
  3. THYROID TAB [Concomitant]
  4. FOSAMAX [Concomitant]
  5. DIOVAN [Concomitant]
  6. COREG [Concomitant]
  7. ZOLOFT [Concomitant]
  8. LASIX [Concomitant]
  9. FIORICET [Concomitant]
  10. MALTOKINASE [Concomitant]
  11. ANLOIDINE [Concomitant]
  12. PRAVASTATIN [Concomitant]
  13. GLIPIZIDE [Concomitant]
  14. NITROFURANTOIN [Concomitant]
  15. FOLIC ACID [Concomitant]
  16. QUERCETIN [Concomitant]

REACTIONS (3)
  - ANAEMIA [None]
  - RENAL DISORDER [None]
  - RENAL FAILURE [None]
